FAERS Safety Report 17248428 (Version 2)
Quarter: 2020Q1

REPORT INFORMATION
  Report Type: Spontaneous
  Country: FR (occurrence: FR)
  Receive Date: 20200108
  Receipt Date: 20200204
  Transmission Date: 20200409
  Serious: Yes (Hospitalization)
  Sender: FDA-Public Use
  Company Number: FR-MYLANLABS-2020M1001725

PATIENT
  Age: 86 Year
  Sex: Male

DRUGS (6)
  1. ZOFENILDUO [Suspect]
     Active Substance: HYDROCHLOROTHIAZIDE\ZOFENOPRIL
     Indication: HYPERTENSION
     Dosage: 1 DOSAGE FORM, QD
     Route: 048
  2. BECLOMETASONE                      /00212602/ [Concomitant]
     Active Substance: BECLOMETHASONE DIPROPIONATE
     Indication: PRODUCT USED FOR UNKNOWN INDICATION
     Dosage: 500 MICROGRAM, QD
     Route: 055
  3. SERETIDE [Concomitant]
     Active Substance: FLUTICASONE PROPIONATE\SALMETEROL XINAFOATE
     Indication: PRODUCT USED FOR UNKNOWN INDICATION
     Dosage: 1 DOSAGE FORM, QD
     Route: 055
  4. FLUINDIONE [Concomitant]
     Active Substance: FLUINDIONE
     Indication: ATRIAL FIBRILLATION
     Dosage: 10 MILLIGRAM, QD
     Route: 048
     Dates: end: 20190220
  5. OMEPRAZOLE. [Concomitant]
     Active Substance: OMEPRAZOLE
     Indication: PRODUCT USED FOR UNKNOWN INDICATION
     Dosage: 20 MILLIGRAM, QD
     Route: 048
  6. SOTALOL. [Suspect]
     Active Substance: SOTALOL
     Indication: HYPERTENSION
     Dosage: 320 MILLIGRAM, QD
     Route: 048

REACTIONS (4)
  - Loss of consciousness [Recovered/Resolved]
  - Fall [Recovered/Resolved]
  - Syncope [Recovered/Resolved]
  - Hypotension [Recovered/Resolved]

NARRATIVE: CASE EVENT DATE: 20190220
